FAERS Safety Report 8456174-9 (Version None)
Quarter: 2012Q2

REPORT INFORMATION
  Report Type: 
  Country: None (occurrence: None)
  Receive Date: 20120621
  Receipt Date: 20120612
  Transmission Date: 20120825
  Serious: Yes (Other)
  Sender: FDA-Public Use
  Company Number: US-ASTRAZENECA-2012SE39420

PATIENT
  Age: 44 Year
  Sex: Female

DRUGS (6)
  1. SYMBICORT [Suspect]
     Dosage: TWO TIMES
     Route: 055
  2. ASACAL HD [Concomitant]
     Dosage: 800, TWO TABLET
  3. POTASSIUM CITRATE [Concomitant]
     Dosage: 10 MEQ 2 PER DAY
  4. CLARITIN [Concomitant]
  5. CLARITIN-D [Concomitant]
  6. TYNAL [Concomitant]
     Dosage: WHEN NEEDED

REACTIONS (1)
  - NEPHROLITHIASIS [None]
